FAERS Safety Report 6997677-3 (Version None)
Quarter: 2010Q3

REPORT INFORMATION
  Report Type: 
  Country: None (occurrence: None)
  Receive Date: 20100918
  Receipt Date: 20091117
  Transmission Date: 20110219
  Serious: No
  Sender: FDA-Public Use
  Company Number: US-WYE-H12200809

PATIENT
  Age: 15 Year
  Sex: Female

DRUGS (3)
  1. PRISTIQ [Suspect]
     Indication: AFFECTIVE DISORDER
     Route: 048
     Dates: start: 20091114
  2. PAXIL [Concomitant]
  3. LAMICTAL [Concomitant]

REACTIONS (1)
  - DIZZINESS [None]
